FAERS Safety Report 10615753 (Version 11)
Quarter: 2016Q1

REPORT INFORMATION
  Report Type: Spontaneous
  Country: US (occurrence: US)
  Receive Date: 20141201
  Receipt Date: 20160105
  Transmission Date: 20160525
  Serious: Yes (Other)
  Sender: FDA-Public Use
  Company Number: US-PFIZER INC-2014327664

PATIENT
  Age: 49 Year
  Sex: Male
  Weight: 104.31 kg

DRUGS (5)
  1. BENEFIX [Suspect]
     Active Substance: COAGULATION FACTOR IX RECOMBINANT HUMAN\ISOPROPYL ALCOHOL
     Dosage: UNK
  2. XANAX [Concomitant]
     Active Substance: ALPRAZOLAM
     Dosage: 2 MG, 3X/DAY
  3. ALPRAZOLAM. [Concomitant]
     Active Substance: ALPRAZOLAM
  4. EFFEXOR [Concomitant]
     Active Substance: VENLAFAXINE HYDROCHLORIDE
  5. LYRICA [Suspect]
     Active Substance: PREGABALIN
     Dosage: 600 MG, UNK (600 MG APPROXIMATELY EVERY 8 AND 12 HOURS A DAY)

REACTIONS (7)
  - Aggression [Unknown]
  - Gait disturbance [Unknown]
  - Burning sensation [Unknown]
  - Limb deformity [Unknown]
  - Phantom pain [Unknown]
  - Feeling abnormal [Unknown]
  - Speech disorder [Not Recovered/Not Resolved]
